FAERS Safety Report 8402322-6 (Version None)
Quarter: 2012Q2

REPORT INFORMATION
  Report Type: 
  Country: None (occurrence: None)
  Receive Date: 20120529
  Receipt Date: 20021120
  Transmission Date: 20120825
  Serious: Yes (Other)
  Sender: FDA-Public Use
  Company Number: 02100-JPN-02-0086

PATIENT
  Age: 67 Year
  Sex: Female
  Weight: 36 kg

DRUGS (5)
  1. PLETAL [Suspect]
     Indication: PERIPHERAL ARTERIAL OCCLUSIVE DISEASE
     Dosage: 100 MG, BID, ORAL
     Route: 048
     Dates: start: 20011213, end: 20021017
  2. RANIVACE (ENALAPRIL MALEATE) TABLET [Concomitant]
  3. MEILAX (ETHYL LOFLAZEPATE) TABLET [Concomitant]
  4. AMLODIN (AMLODIPINE BESILATE) TABLET [Concomitant]
  5. KERLONG (BETAXOLOL HYDROCHLORIDE) TABLET [Concomitant]

REACTIONS (4)
  - HEMIPARESIS [None]
  - CEREBRAL HAEMORRHAGE [None]
  - DEPRESSED LEVEL OF CONSCIOUSNESS [None]
  - AORTIC DISSECTION [None]
